FAERS Safety Report 9040535 (Version 1)
Quarter: 2013Q1

REPORT INFORMATION
  Report Type: Spontaneous
  Country: US (occurrence: US)
  Receive Date: 20130129
  Receipt Date: 20130129
  Transmission Date: 20140127
  Serious: Yes (Hospitalization, Other)
  Sender: FDA-Public Use
  Company Number: US-ABBOTT-12P-163-0888662-00

PATIENT
  Sex: Female

DRUGS (2)
  1. HUMIRA 40 MG/0.8 ML PEN [Suspect]
     Indication: CROHN^S DISEASE
     Dates: start: 2007, end: 201110
  2. METHOTREXATE [Suspect]
     Indication: CROHN^S DISEASE
     Dates: end: 2011

REACTIONS (5)
  - Nasopharyngitis [Recovered/Resolved]
  - Pulmonary fibrosis [Not Recovered/Not Resolved]
  - Pulmonary fibrosis [Not Recovered/Not Resolved]
  - Arthritis enteropathic [Not Recovered/Not Resolved]
  - Arthritis [Not Recovered/Not Resolved]
